FAERS Safety Report 9498484 (Version 1)
Quarter: 2013Q3

REPORT INFORMATION
  Report Type: Spontaneous
  Country: US (occurrence: US)
  Receive Date: 20130904
  Receipt Date: 20130904
  Transmission Date: 20140515
  Serious: Yes (Other)
  Sender: FDA-Public Use
  Company Number: US-GLAXOSMITHKLINE-A1017363A

PATIENT
  Age: 62 Year
  Sex: Male
  Weight: 117.7 kg

DRUGS (1)
  1. VOTRIENT [Suspect]
     Indication: BONE CANCER
     Dosage: 800MG PER DAY
     Route: 048
     Dates: start: 20130227

REACTIONS (8)
  - Abasia [Unknown]
  - Ear swelling [Recovered/Resolved]
  - Tinnitus [Unknown]
  - Rash [Unknown]
  - Pruritus [Unknown]
  - Nausea [Unknown]
  - Dysstasia [Unknown]
  - Asthenia [Unknown]
